FAERS Safety Report 16004972 (Version 5)
Quarter: 2020Q4

REPORT INFORMATION
  Report Type: Report from Study
  Country: GT (occurrence: GT)
  Receive Date: 20190226
  Receipt Date: 20201123
  Transmission Date: 20210113
  Serious: Yes (Other)
  Sender: FDA-Public Use
  Company Number: PHHY2019GT043019

PATIENT
  Sex: Female

DRUGS (2)
  1. GILENYA [Suspect]
     Active Substance: FINGOLIMOD HYDROCHLORIDE
     Dosage: 0.5 MG, QD
     Route: 048
     Dates: start: 20181019
  2. GILENYA [Suspect]
     Active Substance: FINGOLIMOD HYDROCHLORIDE
     Indication: MULTIPLE SCLEROSIS
     Dosage: UNK
     Route: 065

REACTIONS (12)
  - Fatigue [Unknown]
  - Pain [Unknown]
  - Fear [Unknown]
  - Feeling abnormal [Unknown]
  - Stress [Unknown]
  - Asthenia [Unknown]
  - Malaise [Unknown]
  - Systemic scleroderma [Unknown]
  - Anxiety [Unknown]
  - Limb discomfort [Unknown]
  - Abdominal pain [Unknown]
  - Discomfort [Unknown]
